FAERS Safety Report 16741336 (Version 3)
Quarter: 2020Q1

REPORT INFORMATION
  Report Type: Report from Study
  Country: US (occurrence: US)
  Receive Date: 20190826
  Receipt Date: 20200325
  Transmission Date: 20200409
  Serious: Yes (Hospitalization)
  Sender: FDA-Public Use
  Company Number: US-JNJFOC-20190821503

PATIENT
  Sex: Male

DRUGS (1)
  1. TREMFYA [Suspect]
     Active Substance: GUSELKUMAB
     Indication: PSORIASIS
     Dosage: AT WEEK 0, 4, THEN 100 MG 8 WEEKS AFTER SECOND DOSE
     Route: 058
     Dates: start: 201903, end: 201906

REACTIONS (2)
  - Psoriasis [Not Recovered/Not Resolved]
  - Pneumonia [Unknown]
